FAERS Safety Report 20445535 (Version 1)
Quarter: 2022Q1

REPORT INFORMATION
  Report Type: Spontaneous
  Country: US (occurrence: None)
  Receive Date: 20220208
  Receipt Date: 20220208
  Transmission Date: 20220423
  Serious: Yes (Hospitalization)
  Sender: FDA-Public Use
  Company Number: None

PATIENT
  Age: 33 Year
  Sex: Female

DRUGS (1)
  1. KESIMPTA [Suspect]
     Active Substance: OFATUMUMAB
     Dosage: OTHER FREQUENCY : OTHER;?
     Route: 058
     Dates: start: 202106

REACTIONS (4)
  - Muscular weakness [None]
  - Hypoaesthesia [None]
  - Stress at work [None]
  - Multiple sclerosis relapse [None]

NARRATIVE: CASE EVENT DATE: 20220124
